FAERS Safety Report 7969175-1 (Version None)
Quarter: 2011Q4

REPORT INFORMATION
  Report Type: 
  Country: None (occurrence: None)
  Receive Date: 20111209
  Receipt Date: 20111202
  Transmission Date: 20120403
  Serious: Yes (Hospitalization)
  Sender: FDA-Public Use
  Company Number: US-ABBOTT-11P-163-0880937-00

PATIENT
  Sex: Female
  Weight: 66.738 kg

DRUGS (7)
  1. HUMIRA [Suspect]
  2. CANASA [Concomitant]
     Indication: CROHN'S DISEASE
  3. HUMIRA [Suspect]
     Indication: CROHN'S DISEASE
     Dosage: LOADING DOSE
     Dates: start: 20111111, end: 20111111
  4. HUMIRA [Suspect]
     Dates: start: 20111126, end: 20111126
  5. LIALDA [Concomitant]
     Indication: CROHN'S DISEASE
     Dosage: 4 TABS AT BEDTIME
  6. IMODIUM [Concomitant]
     Indication: CROHN'S DISEASE
  7. ACETAMINOPHEN [Concomitant]
     Indication: PRODUCT USED FOR UNKNOWN INDICATION

REACTIONS (5)
  - INJECTION SITE PAIN [None]
  - DEEP VEIN THROMBOSIS [None]
  - PULMONARY EMBOLISM [None]
  - MUSCLE SPASMS [None]
  - DYSPNOEA [None]
